FAERS Safety Report 21289379 (Version 1)
Quarter: 2022Q3

REPORT INFORMATION
  Report Type: Spontaneous
  Country: US (occurrence: US)
  Receive Date: 20220902
  Receipt Date: 20220902
  Transmission Date: 20221027
  Serious: Yes (Other)
  Sender: FDA-Public Use
  Company Number: US-ABBVIE-22K-163-4335803-00

PATIENT

DRUGS (2)
  1. IMBRUVICA [Suspect]
     Active Substance: IBRUTINIB
     Indication: Chronic lymphocytic leukaemia
     Route: 048
  2. BOSUTINIB [Concomitant]
     Active Substance: BOSUTINIB
     Indication: Chronic myeloid leukaemia

REACTIONS (1)
  - Chronic myeloid leukaemia [Unknown]
